FAERS Safety Report 11046740 (Version 1)
Quarter: 2015Q2

REPORT INFORMATION
  Report Type: Spontaneous
  Country: DE (occurrence: DE)
  Receive Date: 20150420
  Receipt Date: 20150420
  Transmission Date: 20150821
  Serious: Yes (Hospitalization)
  Sender: FDA-Public Use
  Company Number: DE-ALKEM-000957

PATIENT
  Sex: Male

DRUGS (1)
  1. QUETIAPINE/QUETIAPINE FUMARATE [Suspect]
     Active Substance: QUETIAPINE FUMARATE
     Dosage: EXTENDED-RELEASE
     Route: 064

REACTIONS (13)
  - Drug level increased [Recovering/Resolving]
  - Hypotonia neonatal [None]
  - Maternal drugs affecting foetus [None]
  - Low birth weight baby [None]
  - Pulmonary oedema neonatal [None]
  - Foetal exposure during pregnancy [Unknown]
  - Metabolic acidosis [None]
  - Transient tachypnoea of the newborn [Recovering/Resolving]
  - Hypokinesia [Recovering/Resolving]
  - Respiratory acidosis [None]
  - Anaemia neonatal [None]
  - Hypotonia [Recovering/Resolving]
  - Caesarean section [None]
